FAERS Safety Report 8108057-1 (Version None)
Quarter: 2012Q1

REPORT INFORMATION
  Report Type: 
  Country: None (occurrence: None)
  Receive Date: 20120202
  Receipt Date: 20120127
  Transmission Date: 20120608
  Serious: Yes (Hospitalization, Congenital Anomaly, Other)
  Sender: FDA-Public Use
  Company Number: US-PFIZER INC-2012024654

PATIENT
  Sex: Female
  Weight: 2.63 kg

DRUGS (15)
  1. LOVENOX [Concomitant]
     Indication: ANTIPHOSPHOLIPID ANTIBODIES POSITIVE
     Dosage: 40 MG, 1X/DAY
     Route: 064
     Dates: start: 20070820
  2. ZOLOFT [Suspect]
     Indication: CRYING
     Dosage: 50 MG, UNK
     Route: 064
     Dates: start: 20030208
  3. MULTI-VITAMINS [Concomitant]
     Dosage: UNK
     Route: 064
  4. PERCOCET [Concomitant]
     Indication: PAIN
     Dosage: 5 MG, UNK 1 TO 2 TABS EVERY 4 HOURS
     Route: 064
     Dates: start: 20071206
  5. DARVOCET-N 50 [Concomitant]
     Indication: PELVIC PAIN
     Dosage: UNK
     Route: 064
     Dates: start: 20071213
  6. HEPARIN [Concomitant]
     Indication: ANTIPHOSPHOLIPID ANTIBODIES POSITIVE
     Dosage: 10000 IU, 2X/DAY
     Route: 064
  7. ZOLOFT [Suspect]
     Dosage: 100MG DAILY
     Route: 064
     Dates: start: 20071016
  8. METOPROLOL [Concomitant]
     Dosage: UNK
     Route: 064
  9. ACETYLSALICYLIC ACID [Concomitant]
     Indication: ANTIPHOSPHOLIPID ANTIBODIES POSITIVE
     Dosage: UNK
     Route: 064
     Dates: start: 20070820
  10. ZOLOFT [Suspect]
     Indication: DEPRESSION
     Dosage: UNK
     Route: 064
     Dates: start: 19991019
  11. ZOLOFT [Suspect]
     Indication: PREMENSTRUAL SYNDROME
     Dosage: 25 MG, UNK
     Route: 064
     Dates: start: 20030922
  12. IRON [Concomitant]
     Dosage: UNK
     Route: 064
  13. PERCOCET [Concomitant]
     Indication: PELVIC PAIN
  14. PERCOCET [Concomitant]
     Indication: PAIN IN EXTREMITY
  15. ACETAMINOPHEN [Concomitant]
     Indication: BACK PAIN
     Dosage: 2 TABS
     Route: 064
     Dates: start: 20070910

REACTIONS (11)
  - KIDNEY MALROTATION [None]
  - HYDROMETRA [None]
  - MATERNAL EXPOSURE TIMING UNSPECIFIED [None]
  - RENAL APLASIA [None]
  - HYDRONEPHROSIS [None]
  - EXOMPHALOS [None]
  - GENITALIA EXTERNAL AMBIGUOUS [None]
  - TALIPES [None]
  - ANTERIOR DISPLACED ANUS [None]
  - CONGENITAL URETERIC ANOMALY [None]
  - CONGENITAL ECTOPIC BLADDER [None]
